FAERS Safety Report 4390601-1 (Version None)
Quarter: 2004Q2

REPORT INFORMATION
  Report Type: 
  Country: None (occurrence: None)
  Receive Date: 20040630
  Receipt Date: 20040622
  Transmission Date: 20050107
  Serious: Yes (Other)
  Sender: FDA-Public Use
  Company Number: 0104-1705

PATIENT
  Age: 56 Year
  Sex: Male
  Weight: 89.8122 kg

DRUGS (4)
  1. ADVICOR [Suspect]
     Indication: BLOOD CHOLESTEROL INCREASED
     Dosage: 1 TABLET (S) QHS PO
     Route: 048
     Dates: start: 20040519, end: 20040614
  2. ADVICOR [Suspect]
     Indication: BLOOD TRIGLYCERIDES INCREASED
     Dosage: 1 TABLET (S) QHS PO
     Route: 048
     Dates: start: 20040519, end: 20040614
  3. ADVICOR [Suspect]
     Indication: LOW DENSITY LIPOPROTEIN DECREASED
     Dosage: 1 TABLET (S) QHS PO
     Route: 048
     Dates: start: 20040519, end: 20040614
  4. ENTERIC-COATED BABY ASPIRIN [Concomitant]

REACTIONS (2)
  - CORNEAL BLEEDING [None]
  - RETINAL TEAR [None]
